FAERS Safety Report 5752090-1 (Version None)
Quarter: 2008Q2

REPORT INFORMATION
  Report Type: 
  Country: None (occurrence: None)
  Receive Date: 20080529
  Receipt Date: 20080519
  Transmission Date: 20081010
  Serious: Yes (Hospitalization)
  Sender: FDA-Public Use
  Company Number: SE-TEVA-171818ISR

PATIENT
  Sex: Female

DRUGS (9)
  1. METHOTREXATE SODIUM TABLETS, 2.5 MG [Suspect]
     Indication: RHEUMATOID ARTHRITIS
     Route: 048
     Dates: start: 20000101, end: 20050501
  2. REMICADE [Suspect]
     Route: 042
     Dates: start: 20000101, end: 20050501
  3. ALENDRONATE SODIUM [Concomitant]
     Route: 048
  4. LATANOPROST [Concomitant]
     Dosage: 50 MICROG/ML
     Route: 031
  5. TENOXICAM [Concomitant]
     Route: 048
  6. ZOPICLONE [Concomitant]
  7. TIMOLOL MALEATE [Concomitant]
     Route: 031
  8. FELODIPINE [Concomitant]
     Route: 048
  9. LEKOVIT CA [Concomitant]
     Dosage: 500 MG/400 IE
     Route: 048

REACTIONS (1)
  - ACUTE MYELOID LEUKAEMIA [None]
